FAERS Safety Report 21546786 (Version 2)
Quarter: 2022Q4

REPORT INFORMATION
  Report Type: Spontaneous
  Country: US (occurrence: US)
  Receive Date: 20221103
  Receipt Date: 20221118
  Transmission Date: 20230112
  Serious: No
  Sender: FDA-Public Use
  Company Number: US-BAUSCH-BL-2022-024254

PATIENT
  Age: 81 Year
  Sex: Female

DRUGS (2)
  1. TRETINOIN [Suspect]
     Active Substance: TRETINOIN
     Indication: Product used for unknown indication
     Route: 065
  2. TRETINOIN [Suspect]
     Active Substance: TRETINOIN

REACTIONS (4)
  - Device issue [Unknown]
  - Product delivery mechanism issue [Unknown]
  - Suspected product quality issue [Unknown]
  - Drug ineffective [Unknown]
